FAERS Safety Report 23345181 (Version 1)
Quarter: 2023Q4

REPORT INFORMATION
  Report Type: Spontaneous
  Country: JP (occurrence: JP)
  Receive Date: 20231228
  Receipt Date: 20231228
  Transmission Date: 20240110
  Serious: Yes (Other)
  Sender: FDA-Public Use
  Company Number: JP-GENMAB-2023-02506

PATIENT

DRUGS (4)
  1. EPKINLY [Suspect]
     Active Substance: EPCORITAMAB-BYSP
     Indication: Product used for unknown indication
     Dosage: UNK, CYCLE1
     Dates: start: 20231206, end: 20231206
  2. EPKINLY [Suspect]
     Active Substance: EPCORITAMAB-BYSP
     Dosage: UNK, THE SECOND ADMINISTRATION IN CYCLE1
     Dates: start: 20231213, end: 20231213
  3. EPKINLY [Suspect]
     Active Substance: EPCORITAMAB-BYSP
     Dosage: UNK, THE THIRD ADMINISTRATION IN CYCLE1
     Dates: start: 20231220
  4. PREDNISOLONE [Suspect]
     Active Substance: PREDNISOLONE
     Indication: Product used for unknown indication
     Dosage: UNK

REACTIONS (1)
  - Cytomegalovirus viraemia [Unknown]

NARRATIVE: CASE EVENT DATE: 20231201
